FAERS Safety Report 24168340 (Version 1)
Quarter: 2024Q3

REPORT INFORMATION
  Report Type: Spontaneous
  Country: US (occurrence: None)
  Receive Date: 20240802
  Receipt Date: 20240802
  Transmission Date: 20241017
  Serious: Yes (unspecified)
  Sender: Public
  Company Number: None

PATIENT
  Age: 89 Year
  Sex: Male

DRUGS (1)
  1. ERLEADA [Suspect]
     Active Substance: APALUTAMIDE
     Indication: Prostate cancer
     Dosage: 180 MG DAILY ORAL
     Route: 048
     Dates: start: 20230308, end: 202407

REACTIONS (3)
  - Prostate cancer [None]
  - Malignant neoplasm progression [None]
  - Therapy change [None]

NARRATIVE: CASE EVENT DATE: 20240701
